FAERS Safety Report 6283979-5 (Version None)
Quarter: 2009Q3

REPORT INFORMATION
  Report Type: 
  Country: None (occurrence: None)
  Receive Date: 20090722
  Receipt Date: 20090714
  Transmission Date: 20100115
  Serious: Yes (Death)
  Sender: FDA-Public Use
  Company Number: ADR20460424-001

PATIENT

DRUGS (1)
  1. ALENDRONATE SODIUM [Suspect]
     Dosage: 70 MG PER DAY, ORAL
     Route: 048

REACTIONS (2)
  - GASTRIC ULCER HAEMORRHAGE [None]
  - OVERDOSE [None]
